FAERS Safety Report 8875154 (Version 2)
Quarter: 2012Q4

REPORT INFORMATION
  Report Type: 
  Country: US (occurrence: US)
  Receive Date: 20121029
  Receipt Date: 20121121
  Transmission Date: 20130627
  Serious: No
  Sender: FDA-Public Use
  Company Number: US-PFIZER INC-2012269595

PATIENT
  Sex: Male

DRUGS (3)
  1. CHANTIX [Suspect]
     Indication: SMOKING CESSATION THERAPY
     Dosage: 0.5 mg, 1x/day
     Dates: start: 20121024, end: 201210
  2. CHANTIX [Suspect]
     Dosage: 1 mg, 2x/day
     Dates: start: 201210, end: 201210
  3. CHANTIX [Suspect]
     Dosage: UNK
     Dates: start: 201210

REACTIONS (1)
  - Abnormal dreams [Unknown]
